FAERS Safety Report 8516381-3 (Version None)
Quarter: 2012Q3

REPORT INFORMATION
  Report Type: 
  Country: None (occurrence: None)
  Receive Date: 20120718
  Receipt Date: 20120709
  Transmission Date: 20120928
  Serious: Yes (Hospitalization)
  Sender: FDA-Public Use
  Company Number: DE-BIOGENIDEC-2012BI018882

PATIENT
  Age: 42 Year
  Sex: Female
  Weight: 65 kg

DRUGS (5)
  1. BRONCHORETARD [Concomitant]
     Indication: ASTHMA
     Route: 048
     Dates: start: 20060101
  2. AERODUR [Concomitant]
     Indication: ASTHMA
     Dates: start: 20060101
  3. SOLVEX [Concomitant]
     Indication: DEPRESSION
     Route: 048
     Dates: start: 20090501
  4. LEVOTHYROXINE SODIUM [Concomitant]
     Indication: PRODUCT USED FOR UNKNOWN INDICATION
  5. AVONEX [Suspect]
     Indication: MULTIPLE SCLEROSIS
     Route: 030
     Dates: start: 20110301

REACTIONS (2)
  - ATAXIA [None]
  - VISUAL IMPAIRMENT [None]
